FAERS Safety Report 7765566-2 (Version None)
Quarter: 2011Q3

REPORT INFORMATION
  Report Type: 
  Country: None (occurrence: None)
  Receive Date: 20110921
  Receipt Date: 20110907
  Transmission Date: 20111222
  Serious: Yes (Hospitalization)
  Sender: FDA-Public Use
  Company Number: PHHO2011FR14146

PATIENT
  Sex: Male
  Weight: 70 kg

DRUGS (10)
  1. PREDNISONE [Concomitant]
     Dosage: 10 MG, UNK
     Route: 048
     Dates: start: 20110622, end: 20110813
  2. LERCANIDIPINE [Concomitant]
     Dosage: 20 MG, UNK
     Route: 048
     Dates: start: 20110621
  3. MYCOPHENOLATE MOFETIL (CELLCEPT) [Concomitant]
     Dosage: 2 G, UNK
     Route: 048
     Dates: start: 20110617
  4. PROGRAF [Concomitant]
     Dosage: 12 MG, UNK
     Route: 048
     Dates: start: 20110813
  5. PREDNISONE [Concomitant]
     Dosage: 5 MG, UNK
     Route: 048
     Dates: start: 20110814
  6. VALGANCICLOVIR [Concomitant]
     Dosage: 4501 MG, UNK
     Route: 048
     Dates: start: 20110619
  7. ATORVASTATIN CALCIUM [Concomitant]
     Dosage: 20 MG, UNK
     Route: 048
     Dates: start: 20110618
  8. RAD 666 / RAD 001A [Suspect]
     Indication: RENAL TRANSPLANT
     Dosage: 5.5 MG, UNK
     Route: 048
     Dates: start: 20110621, end: 20110812
  9. ARANESP [Concomitant]
     Dosage: 150 UG, WEEKLY
     Route: 058
     Dates: start: 20110630
  10. NEORAL [Suspect]
     Indication: RENAL TRANSPLANT
     Dosage: 150 MG, UNK
     Route: 048
     Dates: start: 20110812, end: 20110812

REACTIONS (3)
  - RENAL FAILURE ACUTE [None]
  - WOUND COMPLICATION [None]
  - LYMPHORRHOEA [None]
